FAERS Safety Report 8224073-3 (Version None)
Quarter: 2012Q1

REPORT INFORMATION
  Report Type: 
  Country: None (occurrence: None)
  Receive Date: 20120321
  Receipt Date: 20120320
  Transmission Date: 20120608
  Serious: Yes (Death)
  Sender: FDA-Public Use
  Company Number: PHFR2012IE001819

PATIENT
  Sex: Male

DRUGS (2)
  1. CLOZARIL [Suspect]
     Indication: SCHIZOPHRENIA
     Dosage: 25 MG,
     Route: 048
     Dates: start: 20100113
  2. CLOZARIL [Suspect]
     Dosage: 600 MG,
     Route: 048
     Dates: start: 20120207

REACTIONS (4)
  - VOMITING [None]
  - ASPIRATION [None]
  - MENTAL DISORDER [None]
  - CHOKING [None]
